FAERS Safety Report 7830352-1 (Version None)
Quarter: 2011Q4

REPORT INFORMATION
  Report Type: 
  Country: None (occurrence: None)
  Receive Date: 20111021
  Receipt Date: 20111011
  Transmission Date: 20120403
  Serious: Yes (Other)
  Sender: FDA-Public Use
  Company Number: GB-SANOFI-AVENTIS-2011SA064778

PATIENT
  Age: 60 Year
  Sex: Male

DRUGS (4)
  1. MULTAQ [Suspect]
     Route: 065
  2. VESICARE [Concomitant]
     Route: 065
  3. SIMVASTATIN [Concomitant]
     Route: 065
  4. ASPIRIN [Concomitant]
     Route: 065

REACTIONS (4)
  - MALAISE [None]
  - BLOOD CREATININE INCREASED [None]
  - EAR INFECTION [None]
  - DIZZINESS [None]
